FAERS Safety Report 9861712 (Version 1)
Quarter: 2014Q1

REPORT INFORMATION
  Report Type: Spontaneous
  Country: CA (occurrence: CA)
  Receive Date: 20140203
  Receipt Date: 20140203
  Transmission Date: 20141002
  Serious: Yes (Other)
  Sender: FDA-Public Use
  Company Number: CA-AMGEN-CANSP2014006801

PATIENT
  Sex: Female

DRUGS (1)
  1. PROLIA [Suspect]
     Indication: OSTEOPOROSIS
     Dosage: UNK
     Route: 065
     Dates: start: 201107

REACTIONS (4)
  - Foot fracture [Not Recovered/Not Resolved]
  - External ear cellulitis [Unknown]
  - Gingival disorder [Not Recovered/Not Resolved]
  - Osteoporosis [Unknown]
